FAERS Safety Report 24872419 (Version 4)
Quarter: 2025Q1

REPORT INFORMATION
  Report Type: Spontaneous
  Country: CZ (occurrence: CZ)
  Receive Date: 20250122
  Receipt Date: 20250328
  Transmission Date: 20250408
  Serious: Yes (Congenital Anomaly)
  Sender: BIOGEN
  Company Number: CZ-BIOGEN-2025BI01297825

PATIENT

DRUGS (1)
  1. TYSABRI [Suspect]
     Active Substance: NATALIZUMAB
     Indication: Product used for unknown indication
     Route: 050
     Dates: start: 20200729, end: 20240923

REACTIONS (2)
  - Trisomy 9 [Not Recovered/Not Resolved]
  - Foetal exposure during pregnancy [Recovered/Resolved]

NARRATIVE: CASE EVENT DATE: 20240501
